FAERS Safety Report 12221412 (Version 1)
Quarter: 2016Q1

REPORT INFORMATION
  Report Type: Spontaneous
  Country: US (occurrence: US)
  Receive Date: 20160330
  Receipt Date: 20160330
  Transmission Date: 20160526
  Serious: No
  Sender: FDA-Public Use
  Company Number: US-GLAXOSMITHKLINE-US2016042625

PATIENT
  Age: 52 Year
  Sex: Female

DRUGS (1)
  1. ABREVA [Suspect]
     Active Substance: DOCOSANOL
     Indication: ORAL HERPES
     Dosage: UNK,4 OR 5 TIMES A DAY
     Dates: start: 20160324, end: 20160328

REACTIONS (2)
  - Drug ineffective [Not Recovered/Not Resolved]
  - Lip haemorrhage [Not Recovered/Not Resolved]

NARRATIVE: CASE EVENT DATE: 20160328
